FAERS Safety Report 25914083 (Version 2)
Quarter: 2025Q4

REPORT INFORMATION
  Report Type: Spontaneous
  Country: JP (occurrence: JP)
  Receive Date: 20251013
  Receipt Date: 20251211
  Transmission Date: 20260118
  Serious: Yes (Hospitalization, Other)
  Sender: PFIZER
  Company Number: JP-GENMAB-2025-03029

PATIENT
  Age: 4 Decade
  Sex: Female

DRUGS (4)
  1. TIVDAK [Suspect]
     Active Substance: TISOTUMAB VEDOTIN-TFTV
     Indication: Cervix carcinoma recurrent
     Dosage: 2 MG/KG, ADMINISTRATION RATE: ADMINISTER OVER 30 MINUTES OR LONGER
     Route: 042
     Dates: start: 20250610, end: 20250812
  2. FLUOROMETHOLONE [Concomitant]
     Active Substance: FLUOROMETHOLONE
     Indication: Eye disorder prophylaxis
     Dosage: UNK, EYE DROP
     Dates: start: 20250609
  3. ALPHAGAN P [Concomitant]
     Active Substance: BRIMONIDINE TARTRATE
     Indication: Eye disorder prophylaxis
     Dosage: UNK, EYE DROP
     Dates: start: 20250610
  4. HYALURONATE SODIUM [Concomitant]
     Active Substance: HYALURONATE SODIUM
     Indication: Eye disorder prophylaxis
     Dosage: UNK, EYE DROP
     Dates: start: 20250610

REACTIONS (3)
  - Cervix carcinoma recurrent [Unknown]
  - Malignant neoplasm progression [Unknown]
  - Malignant ascites [Unknown]

NARRATIVE: CASE EVENT DATE: 20250101
